FAERS Safety Report 4343149-4 (Version None)
Quarter: 2004Q2

REPORT INFORMATION
  Report Type: 
  Country: None (occurrence: None)
  Receive Date: 20040419
  Receipt Date: 20040407
  Transmission Date: 20050107
  Serious: Yes (Hospitalization)
  Sender: FDA-Public Use
  Company Number: A02200401224

PATIENT
  Sex: Female

DRUGS (6)
  1. STILNOX- (ZOLPIDEM) - TABLET- 10 MG [Suspect]
     Dosage: 5 MG OD, ORAL
     Route: 048
     Dates: start: 20031217, end: 20040227
  2. FUCIDINE CAP [Suspect]
     Indication: ARTHRITIS BACTERIAL
     Dosage: 6 UNIT, ORAL
     Route: 048
  3. BROMAZEPAM 1 UNIT [Suspect]
     Dosage: 1.25 UNIT, ORAL
     Route: 048
  4. EFFERALGAN  - (PARACETAMOL) TABLET [Suspect]
     Dosage: ORAL
     Route: 048
  5. ZYVOXID (LINEZOLID) - TABLET - 600 MG [Suspect]
     Indication: ARTHRITIS BACTERIAL
     Dosage: ORAL
     Route: 048
     Dates: start: 20031217, end: 20040227
  6. THERALENE - (ALIMEMAZINE TARTRATE) - DROPS - 1 MG [Suspect]
     Dosage: ORAL
     Route: 048

REACTIONS (2)
  - ANAEMIA [None]
  - NEUTROPENIA [None]
